FAERS Safety Report 6380189-8 (Version None)
Quarter: 2009Q3

REPORT INFORMATION
  Report Type: 
  Country: None (occurrence: None)
  Receive Date: 20090929
  Receipt Date: 20090921
  Transmission Date: 20100115
  Serious: Yes (Hospitalization)
  Sender: FDA-Public Use
  Company Number: US-ELI_LILLY_AND_COMPANY-US200909005046

PATIENT
  Sex: Female

DRUGS (3)
  1. BYETTA [Suspect]
     Dosage: UNK, UNKNOWN
     Route: 058
  2. LANTUS [Concomitant]
     Dosage: UNK, UNKNOWN
  3. NOVOLOG [Concomitant]
     Dosage: UNK, UNKNOWN

REACTIONS (8)
  - DYSPNOEA [None]
  - HYPERSENSITIVITY [None]
  - MIGRAINE [None]
  - OFF LABEL USE [None]
  - PHARYNGEAL OEDEMA [None]
  - POOR QUALITY DRUG ADMINISTERED [None]
  - PRURITUS GENERALISED [None]
  - SWOLLEN TONGUE [None]
